FAERS Safety Report 15121453 (Version 2)
Quarter: 2018Q3

REPORT INFORMATION
  Report Type: Spontaneous
  Country: AU (occurrence: AU)
  Receive Date: 20180709
  Receipt Date: 20180907
  Transmission Date: 20181010
  Serious: Yes (Other)
  Sender: FDA-Public Use
  Company Number: AU-AMGEN-AUSSP2018090996

PATIENT
  Age: 65 Year
  Sex: Female
  Weight: 40 kg

DRUGS (1)
  1. PROLIA [Suspect]
     Active Substance: DENOSUMAB
     Indication: PRODUCT USED FOR UNKNOWN INDICATION
     Dosage: UNK
     Route: 065
     Dates: start: 2012

REACTIONS (3)
  - Impaired healing [Unknown]
  - Tooth extraction [Unknown]
  - Gingivitis [Unknown]

NARRATIVE: CASE EVENT DATE: 201702
